FAERS Safety Report 16344991 (Version 1)
Quarter: 2019Q2

REPORT INFORMATION
  Report Type: Spontaneous
  Country: US (occurrence: US)
  Receive Date: 20190523
  Receipt Date: 20190523
  Transmission Date: 20190711
  Serious: No
  Sender: FDA-Public Use
  Company Number: US-009507513-1905USA004308

PATIENT
  Sex: Female

DRUGS (1)
  1. ASMANEX [Suspect]
     Active Substance: MOMETASONE FUROATE
     Dosage: 220MCG 30 DOSE
     Route: 055

REACTIONS (5)
  - Product quality issue [Unknown]
  - Asthma [Unknown]
  - Incorrect dose administered [Unknown]
  - Poor quality device used [Unknown]
  - Product dose omission [Unknown]
